FAERS Safety Report 14167618 (Version 1)
Quarter: 2017Q4

REPORT INFORMATION
  Report Type: Spontaneous
  Country: US (occurrence: US)
  Receive Date: 20171108
  Receipt Date: 20171108
  Transmission Date: 20180321
  Serious: No
  Sender: FDA-Public Use
  Company Number: US-ASTRAZENECA-2017SF08930

PATIENT
  Sex: Male

DRUGS (2)
  1. BRILINTA [Suspect]
     Active Substance: TICAGRELOR
     Indication: STENT PLACEMENT
     Route: 048
  2. FLOMAX [Concomitant]
     Active Substance: TAMSULOSIN HYDROCHLORIDE
     Dosage: UNKNOWN
     Route: 065

REACTIONS (8)
  - Glaucoma [Unknown]
  - Contusion [Unknown]
  - Blood pressure increased [Unknown]
  - Head injury [Unknown]
  - Feeling abnormal [Unknown]
  - Traumatic haemorrhage [Unknown]
  - Decreased activity [Unknown]
  - Depression [Unknown]

NARRATIVE: CASE EVENT DATE: 201708
